FAERS Safety Report 12256427 (Version 1)
Quarter: 2016Q2

REPORT INFORMATION
  Report Type: Spontaneous
  Country: US (occurrence: US)
  Receive Date: 20160412
  Receipt Date: 20160412
  Transmission Date: 20160815
  Serious: No
  Sender: FDA-Public Use
  Company Number: US-AUROBINDO-AUR-APL-2015-07491

PATIENT
  Sex: Female

DRUGS (2)
  1. GLYBURIDE 1.25 MG [Suspect]
     Active Substance: GLYBURIDE
     Indication: BLOOD GLUCOSE FLUCTUATION
     Dosage: 1.25 MG, UNK
     Route: 065
  2. METFORMIN [Suspect]
     Active Substance: METFORMIN HYDROCHLORIDE
     Indication: BLOOD GLUCOSE FLUCTUATION
     Route: 065

REACTIONS (2)
  - Diabetes mellitus inadequate control [None]
  - Drug ineffective [Unknown]
